FAERS Safety Report 23429540 (Version 3)
Quarter: 2024Q1

REPORT INFORMATION
  Report Type: Spontaneous
  Country: US (occurrence: US)
  Receive Date: 20240122
  Receipt Date: 20240207
  Transmission Date: 20240410
  Serious: Yes (Other)
  Sender: FDA-Public Use
  Company Number: US-PFIZER INC-202400012837

PATIENT
  Age: 64 Year
  Sex: Female
  Weight: 49.8 kg

DRUGS (1)
  1. PAXLOVID [Suspect]
     Active Substance: NIRMATRELVIR\RITONAVIR
     Indication: COVID-19 treatment
     Dosage: NIRMATRELVIR 300MG/RITONAVIR 100MG (400MG) 2X/DAY
     Route: 048
     Dates: start: 20240105, end: 20240110

REACTIONS (14)
  - Hallucination [Recovered/Resolved]
  - Paranoia [Recovered/Resolved]
  - Tachycardia [Recovered/Resolved]
  - Lacrimation increased [Not Recovered/Not Resolved]
  - Dyschromatopsia [Not Recovered/Not Resolved]
  - Yawning [Not Recovered/Not Resolved]
  - Confusional state [Recovering/Resolving]
  - Malaise [Recovering/Resolving]
  - Speech disorder [Recovering/Resolving]
  - Aphasia [Recovering/Resolving]
  - Memory impairment [Recovering/Resolving]
  - Tremor [Recovering/Resolving]
  - Feeling cold [Recovering/Resolving]
  - Urine odour abnormal [Unknown]

NARRATIVE: CASE EVENT DATE: 20240108
